FAERS Safety Report 17544058 (Version 2)
Quarter: 2020Q1

REPORT INFORMATION
  Report Type: Spontaneous
  Country: JP (occurrence: JP)
  Receive Date: 20200316
  Receipt Date: 20200324
  Transmission Date: 20200409
  Serious: Yes (Hospitalization)
  Sender: FDA-Public Use
  Company Number: NVSJ2020JP003098

PATIENT
  Age: 47 Year
  Sex: Female
  Weight: 39 kg

DRUGS (3)
  1. DENOSUMAB [Suspect]
     Active Substance: DENOSUMAB
     Indication: BREAST CANCER
     Dosage: 120 MG, QMO
     Route: 058
  2. DENOSUMAB [Suspect]
     Active Substance: DENOSUMAB
     Dosage: 120 MG, Q3MO
     Route: 058
  3. LETROZOLE. [Suspect]
     Active Substance: LETROZOLE
     Indication: BREAST CANCER
     Dosage: 2.5 MG
     Route: 065

REACTIONS (5)
  - Hypercalcaemia [Recovering/Resolving]
  - Decreased appetite [Unknown]
  - Resorption bone increased [Unknown]
  - Arthralgia [Recovered/Resolved]
  - Thirst [Unknown]
